FAERS Safety Report 15196634 (Version 1)
Quarter: 2018Q3

REPORT INFORMATION
  Report Type: Spontaneous
  Country: DE (occurrence: DE)
  Receive Date: 20180725
  Receipt Date: 20180725
  Transmission Date: 20181010
  Serious: Yes (Hospitalization, Other)
  Sender: FDA-Public Use
  Company Number: DE-BAUSCH-BL-2018-020083

PATIENT
  Age: 45 Year
  Sex: Male

DRUGS (2)
  1. STEGLUJAN [Suspect]
     Active Substance: ERTUGLIFLOZIN PIDOLATE\SITAGLIPTIN PHOSPHATE
     Indication: TYPE 2 DIABETES MELLITUS
     Dosage: 5/100 MG ONCE DAILY
     Route: 048
  2. METFORMIN [Suspect]
     Active Substance: METFORMIN HYDROCHLORIDE
     Indication: TYPE 2 DIABETES MELLITUS
     Dosage: 2 X 1000MG DAILY?1 (UNKNOWN UNIT)
     Route: 065

REACTIONS (2)
  - Ketoacidosis [Recovered/Resolved]
  - Peripheral arterial occlusive disease [Unknown]
